FAERS Safety Report 22598602 (Version 1)
Quarter: 2023Q2

REPORT INFORMATION
  Report Type: Other
  Country: None (occurrence: US)
  Receive Date: 20230614
  Receipt Date: 20230614
  Transmission Date: 20230722
  Serious: Yes (Hospitalization)
  Sender: FDA-Public Use
  Company Number: US-The ACME Laboratories Ltd-2142686

PATIENT
  Age: 33 Year
  Sex: Male

DRUGS (1)
  1. ZOLPIDEM TARTRATE [Suspect]
     Active Substance: ZOLPIDEM TARTRATE
     Indication: Substance use
     Route: 065

REACTIONS (7)
  - Injection site pain [Recovering/Resolving]
  - Injection site swelling [Recovering/Resolving]
  - Paraesthesia [Recovering/Resolving]
  - Ischaemia [Recovering/Resolving]
  - Intentional product misuse [Unknown]
  - Bacteraemia [Recovering/Resolving]
  - Pain in extremity [Recovering/Resolving]
